FAERS Safety Report 5758056-X (Version None)
Quarter: 2008Q2

REPORT INFORMATION
  Report Type: 
  Country: None (occurrence: None)
  Receive Date: 20080604
  Receipt Date: 20080604
  Transmission Date: 20081010
  Serious: Yes (Life-Threatening, Hospitalization, Disabling, Other)
  Sender: FDA-Public Use
  Company Number: None

PATIENT
  Sex: Female
  Weight: 95.2554 kg

DRUGS (3)
  1. HEPARIN [Suspect]
     Indication: HAEMORRHAGE
     Dates: start: 20060309, end: 20060311
  2. HEPARIN [Suspect]
  3. HEPARIN [Suspect]

REACTIONS (6)
  - DRUG HYPERSENSITIVITY [None]
  - HAEMORRHAGE [None]
  - INFECTION [None]
  - POST PROCEDURAL COMPLICATION [None]
  - POSTOPERATIVE WOUND INFECTION [None]
  - THROMBOSIS [None]
